FAERS Safety Report 25272038 (Version 1)
Quarter: 2025Q2

REPORT INFORMATION
  Report Type: Report from Study
  Country: CA (occurrence: CA)
  Receive Date: 20250506
  Receipt Date: 20250506
  Transmission Date: 20250717
  Serious: Yes (Hospitalization, Other)
  Sender: TAKEDA
  Company Number: CA-TAKEDA-2025TUS041839

PATIENT
  Sex: Male

DRUGS (8)
  1. VEDOLIZUMAB [Suspect]
     Active Substance: VEDOLIZUMAB
     Indication: Colitis ulcerative
  2. MESALAMINE [Concomitant]
     Active Substance: MESALAMINE
  3. PREDNISONE [Concomitant]
     Active Substance: PREDNISONE
  4. ALLOPURINOL [Concomitant]
     Active Substance: ALLOPURINOL
  5. FINASTERIDE [Concomitant]
     Active Substance: FINASTERIDE
  6. FUROSEMIDE [Concomitant]
     Active Substance: FUROSEMIDE
  7. RANITIDINE [Concomitant]
     Active Substance: RANITIDINE
  8. TERAZOSIN [Concomitant]
     Active Substance: TERAZOSIN HYDROCHLORIDE

REACTIONS (6)
  - Pericardial effusion [Unknown]
  - Clostridium difficile infection [Unknown]
  - Quality of life decreased [Unknown]
  - Pustule [Unknown]
  - Fatigue [Unknown]
  - Back pain [Unknown]
